FAERS Safety Report 7981554-5 (Version None)
Quarter: 2011Q4

REPORT INFORMATION
  Report Type: 
  Country: None (occurrence: None)
  Receive Date: 20111215
  Receipt Date: 20111212
  Transmission Date: 20120403
  Serious: Yes (Congenital Anomaly, Other)
  Sender: FDA-Public Use
  Company Number: US-PFIZER INC-2011303265

PATIENT
  Sex: Male

DRUGS (1)
  1. ZOLOFT [Suspect]
     Dosage: UNK
     Route: 064
     Dates: start: 20050401

REACTIONS (11)
  - BRADYCARDIA [None]
  - ANOMALOUS PULMONARY VENOUS CONNECTION [None]
  - ATRIAL SEPTAL DEFECT [None]
  - COARCTATION OF THE AORTA [None]
  - ATRIOVENTRICULAR SEPTAL DEFECT [None]
  - HYPOPLASTIC LEFT HEART SYNDROME [None]
  - PERSISTENT LEFT SUPERIOR VENA CAVA [None]
  - VENTRICULAR SEPTAL DEFECT [None]
  - VEIN DISORDER [None]
  - AORTIC STENOSIS [None]
  - PULMONARY VALVE STENOSIS [None]
